FAERS Safety Report 8532738-9 (Version None)
Quarter: 2012Q3

REPORT INFORMATION
  Report Type: 
  Country: None (occurrence: None)
  Receive Date: 20120724
  Receipt Date: 20120717
  Transmission Date: 20120928
  Serious: Yes (Other)
  Sender: FDA-Public Use
  Company Number: PHHY2012JP061693

PATIENT

DRUGS (2)
  1. NEORAL [Suspect]
     Route: 048
  2. SENNOSIDE A+B [Suspect]
     Route: 048

REACTIONS (4)
  - POLYNEUROPATHY [None]
  - HYPOAESTHESIA [None]
  - PAIN [None]
  - ASTHENIA [None]
